FAERS Safety Report 6983965-3 (Version None)
Quarter: 2010Q3

REPORT INFORMATION
  Report Type: 
  Country: None (occurrence: None)
  Receive Date: 20100915
  Receipt Date: 20090417
  Transmission Date: 20110219
  Serious: Yes (Other)
  Sender: FDA-Public Use
  Company Number: US-WYE-H09026809

PATIENT
  Sex: Male

DRUGS (1)
  1. TYGACIL [Suspect]
     Dosage: 50 MG EVERY 12 HOURS
     Route: 042
     Dates: start: 20090401

REACTIONS (1)
  - PLATELET COUNT DECREASED [None]
